FAERS Safety Report 20469823 (Version 2)
Quarter: 2022Q1

REPORT INFORMATION
  Report Type: Report from Study
  Country: GB (occurrence: GB)
  Receive Date: 20220214
  Receipt Date: 20220218
  Transmission Date: 20220423
  Serious: Yes (Life-Threatening, Hospitalization)
  Sender: FDA-Public Use
  Company Number: GB-CELGENE-GBR-20220202951

PATIENT
  Sex: Female
  Weight: 56.3 kg

DRUGS (11)
  1. AZACITIDINE [Suspect]
     Active Substance: AZACITIDINE
     Indication: Acute myeloid leukaemia
     Dosage: 200 MILLIGRAM
     Route: 048
     Dates: start: 20210812, end: 20211215
  2. AZACITIDINE [Suspect]
     Active Substance: AZACITIDINE
     Indication: Myelodysplastic syndrome
  3. PENICILLIN V [Concomitant]
     Active Substance: PENICILLIN V
     Indication: Antibiotic therapy
     Dosage: 250
     Route: 065
     Dates: start: 20210705, end: 20220206
  4. Femostan conti [Concomitant]
     Indication: Hormone replacement therapy
     Dosage: 1.0+5.0
     Route: 065
     Dates: start: 20210609
  5. ACYCLOVIR [Concomitant]
     Active Substance: ACYCLOVIR
     Indication: Antiviral treatment
     Dosage: 400
     Route: 065
     Dates: start: 20211128
  6. TACROLIMUS [Concomitant]
     Active Substance: TACROLIMUS
     Indication: Antiviral treatment
     Dosage: 2.0
     Route: 065
     Dates: start: 20210901
  7. AMLODIPINE [Concomitant]
     Active Substance: AMLODIPINE BESYLATE
     Indication: Hypertension
     Dosage: 5.0
     Route: 065
     Dates: start: 20210617
  8. MYCOPHENOLATE MOFETIL [Concomitant]
     Active Substance: MYCOPHENOLATE MOFETIL
     Indication: Immunosuppression
     Dosage: 1.0
     Route: 065
     Dates: start: 20210615
  9. VORICONAZOLE [Concomitant]
     Active Substance: VORICONAZOLE
     Indication: Antifungal treatment
     Dosage: 200.0
     Route: 065
     Dates: start: 20210706
  10. OMEPRAZOLE [Concomitant]
     Active Substance: OMEPRAZOLE
     Indication: Antacid therapy
     Dosage: 20.0
     Route: 065
     Dates: start: 20210627
  11. PREDNISOLONE [Concomitant]
     Active Substance: PREDNISOLONE
     Indication: Graft versus host disease
     Dosage: 4.0
     Route: 065
     Dates: start: 20211027

REACTIONS (1)
  - Sepsis [Not Recovered/Not Resolved]

NARRATIVE: CASE EVENT DATE: 20220206
